FAERS Safety Report 9501174 (Version 1)
Quarter: 2013Q3

REPORT INFORMATION
  Report Type: Spontaneous
  Country: US (occurrence: US)
  Receive Date: 20130905
  Receipt Date: 20130905
  Transmission Date: 20140515
  Serious: Yes (Other)
  Sender: FDA-Public Use
  Company Number: US-ASTRAZENECA-2013SE66556

PATIENT
  Age: 58 Year
  Sex: Female
  Weight: 104.3 kg

DRUGS (7)
  1. ANASTROZOLE [Suspect]
     Indication: BREAST CANCER
     Dosage: DAILY
     Route: 048
     Dates: start: 201112, end: 2013
  2. FASLODEX [Suspect]
     Indication: BREAST CANCER
     Route: 030
     Dates: start: 20130710
  3. FASLODEX [Suspect]
     Indication: BREAST CANCER
     Dosage: 500 MG ONCE/SINGLE ADMINISTRATION; IN HER LEFT AND RIGHT DELTOID MUSCLES
     Route: 030
     Dates: start: 20130724, end: 20130724
  4. OMEPRAZOLE [Suspect]
     Indication: GASTROOESOPHAGEAL REFLUX DISEASE
     Route: 048
     Dates: start: 2003
  5. CETIRIZINE HYDROCHLORIDE [Concomitant]
     Indication: SEASONAL ALLERGY
  6. TRAMADOL [Concomitant]
     Indication: HEADACHE
     Route: 048
  7. TRAMADOL [Concomitant]
     Indication: ARTHRALGIA
     Route: 048

REACTIONS (12)
  - Breast cancer [Not Recovered/Not Resolved]
  - Pneumonia [Unknown]
  - Mediastinum neoplasm [Unknown]
  - Neoplasm progression [Not Recovered/Not Resolved]
  - Weight decreased [Recovered/Resolved]
  - Weight increased [Unknown]
  - Haemoptysis [Unknown]
  - Vomiting [Unknown]
  - Headache [Not Recovered/Not Resolved]
  - Nausea [Not Recovered/Not Resolved]
  - Injection site pain [Recovered/Resolved]
  - Drug administration error [Unknown]
